FAERS Safety Report 10257121 (Version 2)
Quarter: 2014Q2

REPORT INFORMATION
  Report Type: Spontaneous
  Country: NL (occurrence: NL)
  Receive Date: 20140625
  Receipt Date: 20140627
  Transmission Date: 20141212
  Serious: Yes (Other)
  Sender: FDA-Public Use
  Company Number: NL-MERCK-1406NLD010676

PATIENT
  Age: 48 Year
  Sex: Female
  Weight: 85 kg

DRUGS (3)
  1. SIMVASTATIN [Suspect]
     Indication: BLOOD CHOLESTEROL INCREASED
     Dosage: 40 MG, QD (1 KEER PER DAG 1 STUK(S))
     Route: 048
     Dates: start: 20130718, end: 20130923
  2. PERINDOPRIL ARGININE [Concomitant]
     Dosage: 5 MG, QD(1 KEER PER DAG 1 STUK(S))
     Route: 048
     Dates: start: 20130314
  3. METFORMIN [Concomitant]
     Dosage: 500 MG, BID(2 KEER PER DAG 1 STUK(S))
     Route: 048
     Dates: start: 20130314

REACTIONS (1)
  - Hemiparesis [Recovered/Resolved]
